FAERS Safety Report 9219196 (Version 1)
Quarter: 2013Q2

REPORT INFORMATION
  Report Type: Spontaneous
  Country: US (occurrence: US)
  Receive Date: 20130409
  Receipt Date: 20130409
  Transmission Date: 20140414
  Serious: Yes (Death)
  Sender: FDA-Public Use
  Company Number: US-FOUGERA-2013FO000083

PATIENT
  Age: 55 None
  Sex: Male
  Weight: 72.58 kg

DRUGS (1)
  1. SOLARAZE [Suspect]
     Indication: ACTINIC KERATOSIS
     Route: 061
     Dates: start: 200910, end: 201203

REACTIONS (1)
  - Sudden cardiac death [Fatal]
